FAERS Safety Report 7711338-4 (Version None)
Quarter: 2011Q3

REPORT INFORMATION
  Report Type: 
  Country: None (occurrence: None)
  Receive Date: 20110817
  Receipt Date: 20110802
  Transmission Date: 20111222
  Serious: Yes (Hospitalization)
  Sender: FDA-Public Use
  Company Number: 2011PROUSA00514

PATIENT
  Age: 70 Year
  Sex: Male
  Weight: 103 kg

DRUGS (14)
  1. ZOFRAN /00955301/ (ONDANSETRON) [Concomitant]
  2. HYDROCORTONE [Concomitant]
  3. CEPHALEXIN /00145501/. (CEFALEXIN) [Concomitant]
  4. HYOSCYAMINE (HYOSCYAMINE) [Concomitant]
  5. MAGNESIUM OXIDE (MAGNESIUM OXIDE) [Concomitant]
  6. DENOSUMAB (DENOSUMAB) [Concomitant]
  7. IBUPROFEN [Concomitant]
  8. ACETAMINOPHEN [Concomitant]
  9. PROVENGE [Suspect]
     Indication: PROSTATE CANCER METASTATIC
     Dosage: 250 ML, SINGLE, INTRAVENOUS
     Route: 042
     Dates: start: 20110620, end: 20110620
  10. HYDOCODONE/APAP (HYDROCODONE BITARTRATE, PARACETAMOL) [Concomitant]
  11. PHENERGAN /00033001/ (PROMETHAZINE) [Concomitant]
  12. PYRIDIUM (PHENAZOPYRIDINE) [Concomitant]
  13. POTASSIUM CHLORIDE [Concomitant]
  14. MIRALAX /0634701/ (MACROGOL 3350) [Concomitant]

REACTIONS (6)
  - URINARY TRACT INFECTION BACTERIAL [None]
  - HAEMATURIA [None]
  - STAPHYLOCOCCAL BACTERAEMIA [None]
  - HAEMOGLOBIN DECREASED [None]
  - PELVIC PAIN [None]
  - ESCHERICHIA SEPSIS [None]
